FAERS Safety Report 19951954 (Version 4)
Quarter: 2022Q1

REPORT INFORMATION
  Report Type: Report from Study
  Country: US (occurrence: None)
  Receive Date: 20211014
  Receipt Date: 20220211
  Transmission Date: 20220423
  Serious: Yes (Hospitalization)
  Sender: FDA-Public Use
  Company Number: US-ROCHE-2931915

PATIENT
  Age: 85 Year
  Sex: Male
  Weight: 84.5 kg

DRUGS (10)
  1. VENETOCLAX [Suspect]
     Active Substance: VENETOCLAX
     Indication: Follicular lymphoma
     Dosage: ON 07/OCT/2021, HE RECEIVED MOST RECENT DOSE OF  VENETOCLAX PRIOR TO THE EVENT.
     Route: 048
     Dates: start: 20210814
  2. OBINUTUZUMAB [Suspect]
     Active Substance: OBINUTUZUMAB
     Indication: Follicular lymphoma
     Dosage: ON 25/SEP/2021, HE RECEIVED MOST RECENT DOSE OF OBINUTUZUMAB. ?25 MG/ML
     Route: 042
  3. IBRUTINIB [Suspect]
     Active Substance: IBRUTINIB
     Indication: Follicular lymphoma
     Dosage: ON 07/OCT/2021, HE RECEIVED MOST RECENT DOSE OF  IBRUTINIB PRIOR TO THE EVENT.?140 MG
     Route: 048
     Dates: start: 20210813
  4. PREDNISONE [Suspect]
     Active Substance: PREDNISONE
     Indication: Follicular lymphoma
     Dosage: ON 30/SEP/2021, HE RECEIVED MOST RECENT DOSE OF PREDNISONE
     Route: 048
     Dates: start: 20210813
  5. LENALIDOMIDE [Suspect]
     Active Substance: LENALIDOMIDE
     Indication: Follicular lymphoma
     Dosage: ON 07/OCT/2021, HE RECEIVED MOST RECENT DOSE OF LENALIDOMIDE.
     Route: 048
     Dates: start: 20210813
  6. DOXYCYCLINE [Concomitant]
     Active Substance: DOXYCYCLINE
     Indication: Cellulitis
     Dates: start: 20211005
  7. NEULASTA [Concomitant]
     Active Substance: PEGFILGRASTIM
     Route: 058
     Dates: start: 20210813
  8. BACTRIM [Concomitant]
     Active Substance: SULFAMETHOXAZOLE\TRIMETHOPRIM
     Dosage: 800MG/ 160 PO, MWF SINCE 13AUG2021.
     Route: 048
     Dates: start: 20210813
  9. VANCOMYCIN [Concomitant]
     Active Substance: VANCOMYCIN
     Dates: start: 20211007
  10. ZOSYN [Concomitant]
     Active Substance: PIPERACILLIN SODIUM\TAZOBACTAM SODIUM
     Dates: start: 20211007

REACTIONS (1)
  - Soft tissue infection [Recovered/Resolved]

NARRATIVE: CASE EVENT DATE: 20211007
